FAERS Safety Report 6485655-2 (Version None)
Quarter: 2009Q4

REPORT INFORMATION
  Report Type: 
  Country: None (occurrence: None)
  Receive Date: 20091209
  Receipt Date: 20090705
  Transmission Date: 20100525
  Serious: No
  Sender: FDA-Public Use
  Company Number: US-AMGEN-KDL354419

PATIENT
  Sex: Female

DRUGS (2)
  1. ENBREL [Suspect]
     Indication: ANKYLOSING SPONDYLITIS
     Route: 058
     Dates: start: 20081202
  2. SULFASALAZINE [Concomitant]
     Dates: start: 20090401

REACTIONS (5)
  - ARTHRALGIA [None]
  - BACK PAIN [None]
  - COUGH [None]
  - HEADACHE [None]
  - PYREXIA [None]
